FAERS Safety Report 19170506 (Version 1)
Quarter: 2021Q2

REPORT INFORMATION
  Report Type: Report from Study
  Country: US (occurrence: US)
  Receive Date: 20210422
  Receipt Date: 20210422
  Transmission Date: 20210717
  Serious: Yes (Hospitalization)
  Sender: FDA-Public Use
  Company Number: US-BAUSCH-BL-2020-036916

PATIENT
  Age: 67 Year
  Sex: Female
  Weight: 83.54 kg

DRUGS (8)
  1. LACTULOSE. [Concomitant]
     Active Substance: LACTULOSE
     Indication: HEPATIC ENCEPHALOPATHY
     Route: 048
  2. LACTULOSE. [Concomitant]
     Active Substance: LACTULOSE
     Route: 048
     Dates: start: 20201209, end: 20210324
  3. XIFAXAN [Suspect]
     Active Substance: RIFAXIMIN
     Dosage: END OF DECEMBER, IT WAS AN EMERGENCY SUPPLY
     Route: 048
     Dates: start: 202103
  4. PROPANOL (PROPRANOLOL HYDROCHLORIDE) [Concomitant]
     Active Substance: PROPRANOLOL HYDROCHLORIDE
     Indication: PRODUCT USED FOR UNKNOWN INDICATION
     Dosage: PRESSURE PILL
  5. XIFAXAN [Suspect]
     Active Substance: RIFAXIMIN
     Route: 048
     Dates: start: 202103
  6. XIFAXAN [Suspect]
     Active Substance: RIFAXIMIN
     Indication: HEPATIC ENCEPHALOPATHY
     Dosage: OVER FOUR YEARS AGO (2014 OR 2015)
     Route: 048
     Dates: end: 20201207
  7. IRON [Concomitant]
     Active Substance: IRON
     Indication: BLOOD IRON DECREASED
     Dosage: AS DIRECTED
     Route: 048
  8. MAGNESIUM [Concomitant]
     Active Substance: MAGNESIUM
     Indication: BLOOD MAGNESIUM DECREASED
     Dosage: AS DIRECTED
     Route: 048

REACTIONS (5)
  - Ammonia increased [Recovered/Resolved]
  - Delirium [Recovered/Resolved]
  - Inability to afford medication [Unknown]
  - Decreased appetite [Recovered/Resolved]
  - Therapy interrupted [Unknown]

NARRATIVE: CASE EVENT DATE: 20201205
